FAERS Safety Report 6607651-4 (Version None)
Quarter: 2010Q1

REPORT INFORMATION
  Report Type: 
  Country: None (occurrence: None)
  Receive Date: 20100301
  Receipt Date: 20091202
  Transmission Date: 20100710
  Serious: No
  Sender: FDA-Public Use
  Company Number: PHEH2009US14010

PATIENT
  Sex: Male
  Weight: 94.331 kg

DRUGS (3)
  1. EXJADE [Suspect]
     Indication: IRON OVERLOAD
     Dosage: 1000 MG, BID
     Route: 048
     Dates: start: 20081001, end: 20090901
  2. EXJADE [Suspect]
     Indication: MYELODYSPLASTIC SYNDROME
     Dosage: 1 WEEK ON, 2 WEEKS OFF, 1 WEEK ON
     Dates: start: 20100101
  3. EXJADE [Suspect]
     Indication: HAEMOSIDEROSIS

REACTIONS (1)
  - BLOOD CREATININE INCREASED [None]
